FAERS Safety Report 9103847 (Version 1)
Quarter: 2013Q1

REPORT INFORMATION
  Report Type: Spontaneous
  Country: US (occurrence: US)
  Receive Date: 20130219
  Receipt Date: 20130219
  Transmission Date: 20140127
  Serious: Yes (Hospitalization)
  Sender: FDA-Public Use
  Company Number: US-GILEAD-2012-0065791

PATIENT
  Sex: Female

DRUGS (5)
  1. LETAIRIS [Suspect]
     Indication: PULMONARY HYPERTENSION
     Dosage: 10 MG, QD
     Route: 048
     Dates: start: 20100719
  2. LETAIRIS [Suspect]
     Indication: CREST SYNDROME
  3. REVATIO [Suspect]
  4. REMODULIN [Suspect]
  5. VENTAVIS [Concomitant]

REACTIONS (1)
  - Pulmonary arterial hypertension [Unknown]
